FAERS Safety Report 4894668-3 (Version None)
Quarter: 2006Q1

REPORT INFORMATION
  Report Type: 
  Country: None (occurrence: None)
  Receive Date: 20060127
  Receipt Date: 20060123
  Transmission Date: 20060701
  Serious: Yes (Hospitalization)
  Sender: FDA-Public Use
  Company Number: US-MERCK-0601USA02944

PATIENT
  Age: 47 Year
  Sex: Female
  Weight: 100 kg

DRUGS (21)
  1. AMOXICILLIN AND CLAVULANATE POTASSIUM [Concomitant]
     Route: 065
  2. LANTUS [Concomitant]
     Route: 065
  3. VIOXX [Suspect]
     Indication: ARTHRITIS
     Route: 048
     Dates: start: 20030729, end: 20040901
  4. VIOXX [Suspect]
     Route: 048
     Dates: start: 20030729, end: 20040901
  5. PROTONIX [Concomitant]
     Route: 065
  6. PLAVIX [Concomitant]
     Route: 065
  7. DOCUSATE CALCIUM [Concomitant]
     Route: 065
  8. ZOCOR [Concomitant]
     Route: 065
  9. NORVASC [Concomitant]
     Route: 065
  10. MONOPRIL [Concomitant]
     Route: 065
  11. GLYBURIDE [Concomitant]
     Route: 065
  12. CYCLOBENZAPRINE HYDROCHLORIDE [Concomitant]
     Route: 065
  13. NORTRIPTYLINE [Concomitant]
     Route: 065
  14. IMITREX [Concomitant]
     Route: 065
  15. ASPIRIN [Concomitant]
     Route: 065
  16. TRAMADOL HYDROCHLORIDE [Concomitant]
     Route: 065
  17. PAXIL [Concomitant]
     Route: 065
  18. METFORMIN [Concomitant]
     Route: 065
  19. LIPITOR [Concomitant]
     Route: 065
  20. NEXIUM [Concomitant]
     Route: 065
  21. IRON (UNSPECIFIED) AND VITAMINS (UNSPECIFIED) [Concomitant]
     Route: 065

REACTIONS (11)
  - ARTHRALGIA [None]
  - BACK PAIN [None]
  - DEPRESSION [None]
  - DIABETES MELLITUS NON-INSULIN-DEPENDENT [None]
  - HYPERLIPIDAEMIA [None]
  - HYPERTENSION [None]
  - MICROCYTIC ANAEMIA [None]
  - MUSCLE SPASMS [None]
  - PAIN [None]
  - SUICIDAL IDEATION [None]
  - TRANSIENT ISCHAEMIC ATTACK [None]
